FAERS Safety Report 14944183 (Version 17)
Quarter: 2019Q2

REPORT INFORMATION
  Report Type: Report from Study
  Country: CA (occurrence: CA)
  Receive Date: 20180528
  Receipt Date: 20190626
  Transmission Date: 20190711
  Serious: Yes (Other)
  Sender: FDA-Public Use
  Company Number: PHHY2018CA033672

PATIENT
  Age: 73 Year
  Sex: Female
  Weight: 63.49 kg

DRUGS (5)
  1. SANDOSTATIN LAR DEPOT [Suspect]
     Active Substance: OCTREOTIDE ACETATE
     Indication: CARCINOID TUMOUR
     Dosage: 30 MG, QMO (EVERY 4 WEEKS)
     Route: 030
     Dates: start: 20171229
  2. SANDOSTATIN LAR DEPOT [Suspect]
     Active Substance: OCTREOTIDE ACETATE
     Dosage: 30 MG, QW2
     Route: 030
  3. BISOPROLOL [Concomitant]
     Active Substance: BISOPROLOL
     Indication: HYPERTENSION
     Dosage: 5 MG, QD
     Route: 048
  4. CO AMLODIPINE [Concomitant]
     Indication: PRODUCT USED FOR UNKNOWN INDICATION
     Dosage: 5 MG, QD
     Route: 048
  5. COVERSYL [Concomitant]
     Active Substance: PERINDOPRIL
     Indication: PRODUCT USED FOR UNKNOWN INDICATION
     Dosage: 8 MG, QD
     Route: 048
     Dates: start: 2018

REACTIONS (27)
  - Procedural pain [Unknown]
  - Inappropriate schedule of product administration [Unknown]
  - Metastases to lung [Unknown]
  - Anaemia [Not Recovered/Not Resolved]
  - Osteoarthritis [Unknown]
  - Choking [Unknown]
  - Mood altered [Unknown]
  - Fatigue [Unknown]
  - Platelet count decreased [Unknown]
  - Blood pressure fluctuation [Unknown]
  - Mass [Unknown]
  - Skin plaque [Unknown]
  - Diarrhoea [Recovering/Resolving]
  - Vomiting [Recovering/Resolving]
  - Blood pressure systolic increased [Unknown]
  - Bicytopenia [Unknown]
  - Headache [Unknown]
  - Injection site pain [Unknown]
  - Abdominal pain [Recovering/Resolving]
  - Hypotension [Unknown]
  - Erythema [Unknown]
  - Bronchitis [Unknown]
  - Muscle spasms [Unknown]
  - Weight decreased [Unknown]
  - Cough [Recovering/Resolving]
  - Arthralgia [Unknown]
  - Nausea [Unknown]

NARRATIVE: CASE EVENT DATE: 20181012
